FAERS Safety Report 5354847-8 (Version None)
Quarter: 2007Q2

REPORT INFORMATION
  Report Type: 
  Country: None (occurrence: None)
  Receive Date: 20070612
  Receipt Date: 20070529
  Transmission Date: 20071010
  Serious: Yes (Hospitalization, Other)
  Sender: FDA-Public Use
  Company Number: JP-PFIZER INC-2007001649

PATIENT
  Sex: Male

DRUGS (7)
  1. CONAN [Suspect]
     Indication: HYPERTENSION
     Dosage: DAILY DOSE:20MG
     Route: 048
     Dates: start: 19980312, end: 20061222
  2. NITOROL R [Suspect]
     Indication: ANGINA PECTORIS
     Dosage: DAILY DOSE:40MG
     Route: 048
     Dates: start: 19970303
  3. TICLOPIDINE HCL [Suspect]
     Indication: CAROTID ARTERY STENOSIS
     Dosage: DAILY DOSE:200MG
     Route: 048
     Dates: start: 19970228, end: 20070104
  4. LENDORMIN [Concomitant]
     Dates: start: 20050818
  5. SELBEX [Concomitant]
  6. GASTER [Concomitant]
  7. NITROPEN [Concomitant]

REACTIONS (1)
  - RASH [None]
